FAERS Safety Report 4435442-1 (Version None)
Quarter: 2004Q3

REPORT INFORMATION
  Report Type: 
  Country: None (occurrence: None)
  Receive Date: 20040826
  Receipt Date: 20040809
  Transmission Date: 20050211
  Serious: Yes (Hospitalization, Other)
  Sender: FDA-Public Use
  Company Number: B0253866A

PATIENT
  Age: 53 Year
  Sex: Female
  Weight: 52.4812 kg

DRUGS (7)
  1. AMOXIL [Suspect]
     Indication: HELICOBACTER INFECTION
     Dosage: 750 MG/ TWICE PER DAY/ ORAL
     Route: 048
     Dates: start: 20010830, end: 20010830
  2. CLARITHROMYCIN [Suspect]
     Indication: HELICOBACTER INFECTION
     Dosage: 200 MG/ TWICE PER DAY/ ORAL
     Route: 048
     Dates: start: 20010830, end: 20010830
  3. LANSOPRAZOLE [Suspect]
     Indication: HELICOBACTER INFECTION
     Dosage: 30 MG/ TWICE PER DAY/ ORAL
     Route: 048
     Dates: start: 20010830, end: 20010830
  4. VALPROIC ACID [Concomitant]
  5. ALFACALCIDOL [Concomitant]
  6. CIMETIDINE [Concomitant]
  7. ALUMINUM ASPIRIN [Concomitant]

REACTIONS (7)
  - ALANINE AMINOTRANSFERASE INCREASED [None]
  - ASPARTATE AMINOTRANSFERASE INCREASED [None]
  - CONJUNCTIVAL HYPERAEMIA [None]
  - DRUG INTERACTION [None]
  - PRURITUS [None]
  - PSYCHOTIC DISORDER [None]
  - STEVENS-JOHNSON SYNDROME [None]
